FAERS Safety Report 7503068-9 (Version None)
Quarter: 2011Q2

REPORT INFORMATION
  Report Type: 
  Country: None (occurrence: None)
  Receive Date: 20110525
  Receipt Date: 20101008
  Transmission Date: 20111010
  Serious: No
  Sender: FDA-Public Use
  Company Number: US-NOVEN-ALL1-2010-05276

PATIENT
  Sex: Female
  Weight: 72.562 kg

DRUGS (4)
  1. ZYRTEC [Concomitant]
     Dosage: 5 MG, AS REQ'D
     Route: 048
     Dates: start: 20080101
  2. DAYTRANA [Suspect]
     Dosage: 20 MG, 1X/DAY:QD
     Route: 062
     Dates: start: 20100922, end: 20100901
  3. NORTREL                            /00318901/ [Concomitant]
     Dosage: UNK, 1X/DAY:QD
     Route: 048
     Dates: start: 20080101
  4. CLONIDINE [Concomitant]
     Dosage: .2 MG, 1X/DAY:QD
     Route: 048
     Dates: start: 20100901

REACTIONS (4)
  - DRUG ADMINISTERED AT INAPPROPRIATE SITE [None]
  - OFF LABEL USE [None]
  - PRODUCT QUALITY ISSUE [None]
  - APPLICATION SITE RASH [None]
